FAERS Safety Report 8243894-4 (Version None)
Quarter: 2012Q1

REPORT INFORMATION
  Report Type: 
  Country: None (occurrence: None)
  Receive Date: 20120329
  Receipt Date: 20110425
  Transmission Date: 20120608
  Serious: No
  Sender: FDA-Public Use
  Company Number: US-MYLANLABS-2011S1007486

PATIENT
  Age: 54 Year
  Sex: Female

DRUGS (4)
  1. FLEXERIL [Concomitant]
  2. SYNTHROID [Concomitant]
  3. ESTRADIOL [Suspect]
     Indication: HORMONE REPLACEMENT THERAPY
     Dosage: QW
     Route: 062
     Dates: start: 20110222
  4. NEURONTIN [Concomitant]

REACTIONS (1)
  - APPLICATION SITE ERYTHEMA [None]
